FAERS Safety Report 6262694-8 (Version None)
Quarter: 2009Q3

REPORT INFORMATION
  Report Type: 
  Country: None (occurrence: None)
  Receive Date: 20090709
  Receipt Date: 20090703
  Transmission Date: 20100115
  Serious: Yes (Other)
  Sender: FDA-Public Use
  Company Number: FR-AMGEN-QUU354266

PATIENT
  Sex: Female

DRUGS (11)
  1. ARANESP [Suspect]
     Indication: RENAL FAILURE CHRONIC
     Route: 058
     Dates: start: 20090505, end: 20090602
  2. LASIX [Concomitant]
     Route: 048
     Dates: start: 20090501
  3. TARDYFERON [Concomitant]
     Route: 048
     Dates: start: 20090501
  4. SPECIAFOLDINE [Concomitant]
     Route: 048
     Dates: start: 20090501
  5. PERINDOPRIL ERBUMINE [Concomitant]
  6. CORDARONE [Concomitant]
  7. ALDACTONE [Concomitant]
  8. CARDENSIEL [Concomitant]
  9. PREVISCAN [Concomitant]
  10. LEXOMIL [Concomitant]
  11. KAYEXALATE [Concomitant]

REACTIONS (1)
  - DRUG ERUPTION [None]
